FAERS Safety Report 11875730 (Version 1)
Quarter: 2015Q4

REPORT INFORMATION
  Report Type: Spontaneous
  Country: US (occurrence: None)
  Receive Date: 20151228
  Receipt Date: 20151228
  Transmission Date: 20160305
  Serious: No
  Sender: FDA-Public Use
  Company Number: None

PATIENT
  Sex: Male

DRUGS (1)
  1. HUMIRA [Suspect]
     Active Substance: ADALIMUMAB
     Indication: RHEUMATOID ARTHRITIS
     Dosage: 40MG  EVERY 14 DAYS
     Route: 058
     Dates: start: 20150601, end: 201510

REACTIONS (3)
  - Hypoaesthesia [None]
  - Dizziness [None]
  - Dyspnoea [None]
